FAERS Safety Report 19963672 (Version 23)
Quarter: 2025Q4

REPORT INFORMATION
  Report Type: Report from Study
  Country: US (occurrence: US)
  Receive Date: 20211018
  Receipt Date: 20251221
  Transmission Date: 20260117
  Serious: Yes (Hospitalization, Other)
  Sender: CHIESI
  Company Number: US-AMRYT PHARMACEUTICALS DAC-AEGR005281

PATIENT
  Age: 55 Year
  Sex: Female
  Weight: 45.351 kg

DRUGS (20)
  1. METRELEPTIN [Suspect]
     Active Substance: METRELEPTIN
     Indication: Acquired generalised lipodystrophy
     Dosage: 2.5 MILLIGRAM, QD
     Dates: start: 20210917, end: 20210920
  2. INSULIN GLARGINE [Concomitant]
     Active Substance: INSULIN GLARGINE
     Indication: Diabetes mellitus
     Dosage: 20 INTERNATIONAL UNIT, TID
     Dates: start: 20210317, end: 20211117
  3. INSULIN ASPART [Concomitant]
     Active Substance: INSULIN ASPART
     Indication: Diabetes mellitus
     Dosage: 20 INTERNATIONAL UNIT, QD
     Dates: start: 20210323, end: 20220315
  4. AMITRIPTYLINE [Concomitant]
     Active Substance: AMITRIPTYLINE
     Indication: Depression
     Dosage: 50 MILLIGRAM, QD
     Route: 061
     Dates: start: 20210702, end: 20230602
  5. COLCHICINE [Concomitant]
     Active Substance: COLCHICINE
     Indication: Gout
     Dosage: 0.6 MILLIGRAM, QD
     Route: 061
     Dates: start: 2017, end: 20211213
  6. CITALOPRAM [Concomitant]
     Active Substance: CITALOPRAM
     Indication: Depression
     Dosage: 25 MILLIGRAM, QD
     Route: 061
     Dates: start: 2018, end: 20211213
  7. VITAMIN B12 [Concomitant]
     Active Substance: CYANOCOBALAMIN
     Indication: Anaemia vitamin B12 deficiency
     Dosage: 1 GRAM, QM
     Dates: start: 2018
  8. LEVOTHYROXINE [Concomitant]
     Active Substance: LEVOTHYROXINE
     Indication: Hypothyroidism
     Dosage: 250 MICROGRAM, QD
     Route: 061
     Dates: start: 2010, end: 20220406
  9. ONDANSETRON [Concomitant]
     Active Substance: ONDANSETRON
     Indication: Prophylaxis of nausea and vomiting
     Dosage: 4 MILLIGRAM, PR
     Route: 061
     Dates: start: 2018
  10. VITAMINS [Concomitant]
     Active Substance: VITAMINS
     Indication: Supplementation therapy
     Dosage: 2 DOSAGE FORM, QD
     Route: 061
     Dates: start: 2010
  11. MELATONIN [Concomitant]
     Active Substance: MELATONIN
     Indication: Insomnia
     Dosage: 10 MILLIGRAM, QD
     Route: 061
     Dates: start: 201002
  12. AMLODIPINE [Concomitant]
     Active Substance: AMLODIPINE BESYLATE
     Indication: Hypertension
     Dosage: 5 MILLIGRAM, QD
     Route: 061
     Dates: start: 20210320, end: 20220124
  13. FAMOTIDINE [Concomitant]
     Active Substance: FAMOTIDINE
     Indication: Gastrooesophageal reflux disease
     Dosage: 20 MILLIGRAM, QD
     Route: 061
     Dates: start: 20210320, end: 20211223
  14. GABAPENTIN [Concomitant]
     Active Substance: GABAPENTIN
     Indication: Neuropathy peripheral
     Dosage: 300 MILLIGRAM, TID
     Route: 061
     Dates: start: 20210323, end: 20211223
  15. LISINOPRIL [Concomitant]
     Active Substance: LISINOPRIL
     Indication: Hypertension
     Dosage: 10 MILLIGRAM, QD
     Route: 061
     Dates: start: 20210406, end: 20211213
  16. POTASSIUM [Concomitant]
     Active Substance: POTASSIUM
     Indication: Hypokalaemia
     Dosage: 60 MILLIEQUIVALENT, QD
     Route: 061
     Dates: start: 20210416, end: 20211213
  17. TRAMADOL [Concomitant]
     Active Substance: TRAMADOL
     Indication: Gout
     Dosage: 100 MILLIGRAM, BID
     Route: 061
     Dates: start: 20210520
  18. ALLOPURINOL [Concomitant]
     Active Substance: ALLOPURINOL
     Indication: Gout
     Dosage: 450 MILLIGRAM, QD
     Dates: start: 20210511, end: 20211223
  19. MAGNESIUM [Concomitant]
     Active Substance: MAGNESIUM
     Indication: Hypomagnesaemia
     Dosage: 500 MILLIGRAM, QID
     Route: 061
     Dates: start: 20210629
  20. BACLOFEN [Concomitant]
     Active Substance: BACLOFEN
     Indication: Muscle spasms
     Dosage: 5 MILLIGRAM, TID
     Dates: start: 20201007, end: 20211212

REACTIONS (19)
  - Neuropathy peripheral [Not Recovered/Not Resolved]
  - Hyperkalaemia [Recovered/Resolved]
  - Acute kidney injury [Recovered/Resolved]
  - Dehydration [Unknown]
  - Subcapsular renal haematoma [Recovered/Resolved]
  - Urinary bladder rupture [Recovered/Resolved with Sequelae]
  - Sepsis [Recovered/Resolved]
  - Influenza like illness [Unknown]
  - Vomiting [Unknown]
  - Acute kidney injury [Recovered/Resolved]
  - Dehydration [Recovered/Resolved]
  - Acute kidney injury [Recovered/Resolved]
  - Diarrhoea [Recovered/Resolved]
  - Mental status changes [Recovered/Resolved]
  - Anaemia [Recovered/Resolved]
  - Arteriovenous fistula [Recovered/Resolved]
  - Bladder spasm [Not Recovered/Not Resolved]
  - Fall [Recovered/Resolved]
  - Motor dysfunction [Not Recovered/Not Resolved]

NARRATIVE: CASE EVENT DATE: 20210921
